FAERS Safety Report 7240485-9 (Version None)
Quarter: 2011Q1

REPORT INFORMATION
  Report Type: 
  Country: None (occurrence: None)
  Receive Date: 20110124
  Receipt Date: 20110121
  Transmission Date: 20110831
  Serious: Yes (Hospitalization, Other)
  Sender: FDA-Public Use
  Company Number: US-PFIZER INC-2011015705

PATIENT
  Sex: Female
  Weight: 83.9 kg

DRUGS (4)
  1. BENADRYL [Concomitant]
     Indication: HYPERSENSITIVITY
     Dosage: 25 MG, AS NEEDED
     Route: 048
  2. NORVASC [Suspect]
     Indication: HYPERTENSION
     Dosage: UNK
     Route: 048
  3. VALSARTAN [Suspect]
     Dosage: UNK
  4. ZYRTEC [Concomitant]
     Indication: HYPERSENSITIVITY
     Dosage: 10 MG, AS NEEDED
     Route: 048

REACTIONS (4)
  - URTICARIA [None]
  - HYPOAESTHESIA ORAL [None]
  - DYSPNOEA [None]
  - THROAT TIGHTNESS [None]
